FAERS Safety Report 4449807-5 (Version None)
Quarter: 2004Q3

REPORT INFORMATION
  Report Type: 
  Country: None (occurrence: None)
  Receive Date: 20040802
  Receipt Date: 20040420
  Transmission Date: 20050211
  Serious: No
  Sender: FDA-Public Use
  Company Number: 2004-115441-NL

PATIENT
  Age: 41 Year
  Sex: Female

DRUGS (1)
  1. NUVARING [Suspect]
     Dosage: DF DAILY
     Dates: start: 20030101

REACTIONS (1)
  - SMEAR CERVIX ABNORMAL [None]
